FAERS Safety Report 9972066 (Version 1)
Quarter: 2014Q1

REPORT INFORMATION
  Report Type: Report from Study
  Country: US (occurrence: US)
  Receive Date: 20140306
  Receipt Date: 20140306
  Transmission Date: 20141002
  Serious: No
  Sender: FDA-Public Use
  Company Number: US-ABBVIE-13P-163-1151293-00

PATIENT
  Age: 30 Year
  Sex: Female
  Weight: 98.97 kg

DRUGS (6)
  1. HUMIRA [Suspect]
     Indication: CROHN^S DISEASE
     Dates: start: 2011, end: 201307
  2. PROMETHAZINE [Concomitant]
     Indication: NAUSEA
  3. AMITRIPTYLINE [Concomitant]
     Indication: DEPRESSION
  4. TRAZODONE [Concomitant]
     Indication: DEPRESSION
  5. OXYCODONE [Concomitant]
     Indication: PAIN
  6. GLYCOPYRROLATE [Concomitant]
     Indication: CROHN^S DISEASE

REACTIONS (1)
  - Urinary tract infection [Not Recovered/Not Resolved]
